FAERS Safety Report 8351536-2 (Version None)
Quarter: 2012Q2

REPORT INFORMATION
  Report Type: 
  Country: None (occurrence: None)
  Receive Date: 20120511
  Receipt Date: 20120411
  Transmission Date: 20120825
  Serious: Yes (Hospitalization, Disabling, Other)
  Sender: FDA-Public Use
  Company Number: GB-RANBAXY-2010RR-33724

PATIENT
  Age: 70 Year
  Sex: Male

DRUGS (16)
  1. CLOPIDOGREL [Suspect]
     Dosage: 75 MG, QD
     Route: 065
  2. ERYTHROMYCIN [Suspect]
     Indication: CELLULITIS
  3. MEROPENEM [Suspect]
     Indication: CELLULITIS
     Dosage: 2 G, BID
     Route: 042
  4. ERYTHROMYCIN [Suspect]
     Indication: CHALAZION
     Dosage: 250 MG, QID
     Route: 048
  5. METRONIDAZOLE [Suspect]
     Indication: CELLULITIS
  6. WARFARIN SODIUM [Suspect]
     Indication: PULMONARY EMBOLISM
     Route: 065
  7. METRONIDAZOLE [Suspect]
     Indication: CHALAZION
     Dosage: 400 MG, TID
     Route: 048
  8. MEROPENEM [Suspect]
     Indication: CHALAZION
  9. CLOPIDOGREL [Suspect]
     Indication: CHEST PAIN
     Dosage: 300 MG, UNK
     Route: 065
  10. CIPROFLOXACIN [Suspect]
     Indication: CHALAZION
     Dosage: 750 MG, BID
     Route: 048
  11. CIPROFLOXACIN [Suspect]
     Indication: CELLULITIS
  12. TEICOPLANIN [Suspect]
     Indication: CELLULITIS
  13. MEROPENEM [Concomitant]
     Dosage: 2 G, BID
     Route: 051
  14. ASPIRIN [Suspect]
     Dosage: 75 MG, UNK
     Route: 065
  15. ASPIRIN [Suspect]
     Indication: CHEST PAIN
     Dosage: 300 MG, UNK
     Route: 065
  16. TEICOPLANIN [Suspect]
     Indication: CHALAZION
     Dosage: 400 MG, QD
     Route: 030

REACTIONS (10)
  - DECREASED APPETITE [None]
  - PYREXIA [None]
  - INTERNATIONAL NORMALISED RATIO INCREASED [None]
  - COAGULATION TIME PROLONGED [None]
  - INTRAOCULAR PRESSURE INCREASED [None]
  - DRUG INTERACTION [None]
  - HEADACHE [None]
  - EYE PAIN [None]
  - HYPHAEMA [None]
  - NAUSEA [None]
